FAERS Safety Report 23688410 (Version 1)
Quarter: 2024Q1

REPORT INFORMATION
  Report Type: Spontaneous
  Country: US (occurrence: None)
  Receive Date: 20240329
  Receipt Date: 20240329
  Transmission Date: 20240410
  Serious: Yes (Other)
  Sender: FDA-Public Use
  Company Number: 2024A072628

PATIENT
  Age: 57 Year
  Sex: Female

DRUGS (2)
  1. TAGRISSO [Suspect]
     Active Substance: OSIMERTINIB
     Indication: Product used for unknown indication
     Route: 048
     Dates: start: 2021
  2. GILOTRIF [Suspect]
     Active Substance: AFATINIB
     Indication: Lung neoplasm malignant
     Dosage: 30.0MG UNKNOWN
     Dates: start: 20230523

REACTIONS (4)
  - Neoplasm malignant [Unknown]
  - Upper limb fracture [Unknown]
  - Wrong product administered [Unknown]
  - Drug ineffective [Unknown]
